FAERS Safety Report 13656145 (Version 1)
Quarter: 2017Q2

REPORT INFORMATION
  Report Type: Spontaneous
  Country: US (occurrence: US)
  Receive Date: 20170615
  Receipt Date: 20170615
  Transmission Date: 20170830
  Serious: No
  Sender: FDA-Public Use
  Company Number: US-LEXICON PHARMACEUTICALS, INC-17-1606-00308

PATIENT
  Age: 70 Year
  Sex: Female

DRUGS (11)
  1. PANCRELIPASE. [Concomitant]
     Active Substance: PANCRELIPASE
  2. VITAMIN D [Concomitant]
     Active Substance: CHOLECALCIFEROL
  3. IRBESARTAN-HYDROCHLOROTHIAZIDE [Concomitant]
  4. SANDOSTATIN LAR DEPOT [Concomitant]
     Active Substance: OCTREOTIDE ACETATE
  5. TELOTRISTAT ETHYL [Suspect]
     Active Substance: TELOTRISTAT ETHYL
     Indication: CARCINOID SYNDROME
     Route: 048
     Dates: start: 20170508
  6. QUESTRAN [Concomitant]
     Active Substance: CHOLESTYRAMINE
  7. ATORVASTATIN [Concomitant]
     Active Substance: ATORVASTATIN
  8. LOPERAMIDE [Concomitant]
     Active Substance: LOPERAMIDE
  9. AMLODIPINE [Concomitant]
     Active Substance: AMLODIPINE BESYLATE
  10. LEVOTHYROXINE. [Concomitant]
     Active Substance: LEVOTHYROXINE
  11. SERTRALINE [Concomitant]
     Active Substance: SERTRALINE HYDROCHLORIDE

REACTIONS (3)
  - Headache [Recovered/Resolved]
  - Nausea [Not Recovered/Not Resolved]
  - Abdominal pain [Recovered/Resolved]

NARRATIVE: CASE EVENT DATE: 201705
